FAERS Safety Report 10961770 (Version 1)
Quarter: 2015Q1

REPORT INFORMATION
  Report Type: Spontaneous
  Country: US (occurrence: US)
  Receive Date: 20150327
  Receipt Date: 20150327
  Transmission Date: 20150721
  Serious: Yes (Hospitalization, Other)
  Sender: FDA-Public Use
  Company Number: US-ABBVIE-15P-163-1363402-00

PATIENT
  Age: 53 Year
  Sex: Male
  Weight: 76.27 kg

DRUGS (8)
  1. CLONIDINE. [Concomitant]
     Active Substance: CLONIDINE
     Indication: PRODUCT USED FOR UNKNOWN INDICATION
  2. AMLODIPINE [Concomitant]
     Active Substance: AMLODIPINE BESYLATE
     Indication: PRODUCT USED FOR UNKNOWN INDICATION
  3. METOLAZONE. [Concomitant]
     Active Substance: METOLAZONE
     Indication: PRODUCT USED FOR UNKNOWN INDICATION
  4. VIEKIRA PAK [Suspect]
     Active Substance: DASABUVIR\OMBITASVIR\PARITAPREVIR\RITONAVIR
     Indication: CHRONIC HEPATITIS C
     Dosage: 3 TABS IN AM AND 1 TAB IN PM
     Route: 048
     Dates: start: 20150122
  5. HYDRALAZINE [Concomitant]
     Active Substance: HYDRALAZINE HYDROCHLORIDE
     Indication: PRODUCT USED FOR UNKNOWN INDICATION
  6. OMEPRAZOLE. [Concomitant]
     Active Substance: OMEPRAZOLE
     Indication: PRODUCT USED FOR UNKNOWN INDICATION
  7. FUROSEMIDE. [Concomitant]
     Active Substance: FUROSEMIDE
     Indication: ACUTE KIDNEY INJURY
     Route: 048
  8. FUROSEMIDE. [Concomitant]
     Active Substance: FUROSEMIDE
     Indication: GENERALISED OEDEMA
     Route: 048
     Dates: start: 201502

REACTIONS (14)
  - Acute kidney injury [Recovering/Resolving]
  - Blood glucose increased [Unknown]
  - Blood urea increased [Unknown]
  - Blood albumin increased [Not Recovered/Not Resolved]
  - Nephrosclerosis [Not Recovered/Not Resolved]
  - Weight decreased [Not Recovered/Not Resolved]
  - Diabetic nephropathy [Not Recovered/Not Resolved]
  - Tubulointerstitial nephritis [Not Recovered/Not Resolved]
  - Oedema [Recovering/Resolving]
  - Malaise [Recovering/Resolving]
  - Haemoglobin decreased [Unknown]
  - Generalised oedema [Recovering/Resolving]
  - Blood creatinine increased [Not Recovered/Not Resolved]
  - Anion gap increased [Unknown]

NARRATIVE: CASE EVENT DATE: 201502
